FAERS Safety Report 6917790-6 (Version None)
Quarter: 2010Q3

REPORT INFORMATION
  Report Type: 
  Country: None (occurrence: None)
  Receive Date: 20100810
  Receipt Date: 20100805
  Transmission Date: 20110219
  Serious: Yes (Death, Hospitalization)
  Sender: FDA-Public Use
  Company Number: FR-WYE-G06376410

PATIENT
  Sex: Male
  Weight: 75 kg

DRUGS (10)
  1. TORISEL [Suspect]
     Indication: RENAL CANCER METASTATIC
     Route: 042
     Dates: start: 20100520, end: 20100617
  2. DURAGESIC-100 [Concomitant]
     Dosage: 1 PATCH OF 50 UG EVERY 72 HOURS
  3. DUPHALAC [Concomitant]
     Dosage: 1 TO 3 DOSES TOTAL DAILY
  4. SOLUPRED [Concomitant]
     Dosage: 60 MG TOTAL DAILY
  5. LORAZEPAM [Concomitant]
  6. NEXIUM [Concomitant]
     Indication: PROPHYLAXIS AGAINST GASTROINTESTINAL ULCER
  7. SUCRALFATE [Concomitant]
     Indication: PROPHYLAXIS AGAINST GASTROINTESTINAL ULCER
  8. DIFFU K [Concomitant]
     Dosage: 2 DOSES TOTAL DAILY
  9. PROSCAR [Concomitant]
     Indication: PROSTATIC ADENOMA
  10. MORPHINE [Concomitant]
     Dosage: ON DEMAND, EVERY 6 HOURS

REACTIONS (19)
  - ACUTE RESPIRATORY FAILURE [None]
  - ASTHENIA [None]
  - ATELECTASIS [None]
  - BACTERIAL INFECTION [None]
  - CANDIDA PNEUMONIA [None]
  - CELL DEATH [None]
  - GENERAL PHYSICAL HEALTH DETERIORATION [None]
  - HYPERGLYCAEMIA [None]
  - HYPOCALCAEMIA [None]
  - HYPONATRAEMIA [None]
  - HYPOPROTEINAEMIA [None]
  - INFLAMMATION [None]
  - INTERSTITIAL LUNG DISEASE [None]
  - MICROCYTIC ANAEMIA [None]
  - OEDEMA PERIPHERAL [None]
  - PAIN [None]
  - PLEURISY [None]
  - SEPTIC SHOCK [None]
  - THROMBOCYTOPENIA [None]
